FAERS Safety Report 6273816-7 (Version None)
Quarter: 2009Q3

REPORT INFORMATION
  Report Type: 
  Country: None (occurrence: None)
  Receive Date: 20090720
  Receipt Date: 20090714
  Transmission Date: 20100115
  Serious: Yes (Other)
  Sender: FDA-Public Use
  Company Number: D0062285A

PATIENT
  Age: 3 Year
  Sex: Female
  Weight: 13 kg

DRUGS (1)
  1. ALBUTEROL [Suspect]
     Dosage: 15MG PER DAY
     Route: 048

REACTIONS (5)
  - ACCIDENTAL OVERDOSE [None]
  - DRUG TOXICITY [None]
  - FATIGUE [None]
  - PALLOR [None]
  - TACHYCARDIA [None]
